FAERS Safety Report 24348530 (Version 2)
Quarter: 2024Q4

REPORT INFORMATION
  Report Type: Spontaneous
  Country: US (occurrence: US)
  Receive Date: 20240923
  Receipt Date: 20241015
  Transmission Date: 20250115
  Serious: Yes (Other)
  Sender: AUROBINDO
  Company Number: US-MLMSERVICE-20240902-PI178382-00222-1

PATIENT
  Age: 62 Year
  Sex: Male

DRUGS (12)
  1. METRONIDAZOLE [Suspect]
     Active Substance: METRONIDAZOLE
     Indication: Endocarditis
     Dosage: 500 MILLIGRAM, 3 TIMES A DAY (6-WEEK COURSE OF ORAL METRONIDAZOLE 500 MG THRICE DAILY)
     Route: 048
  2. METRONIDAZOLE [Suspect]
     Active Substance: METRONIDAZOLE
     Indication: Liver abscess
  3. METRONIDAZOLE [Suspect]
     Active Substance: METRONIDAZOLE
     Indication: Brain abscess
  4. METRONIDAZOLE [Suspect]
     Active Substance: METRONIDAZOLE
     Indication: Fusobacterium infection
  5. VANCOMYCIN [Suspect]
     Active Substance: VANCOMYCIN
     Indication: Brain abscess
     Dosage: UNK
     Route: 042
  6. VANCOMYCIN [Suspect]
     Active Substance: VANCOMYCIN
     Indication: Fusobacterium infection
  7. CEFTRIAXONE [Suspect]
     Active Substance: CEFTRIAXONE
     Indication: Endocarditis
     Dosage: 2 GRAM, TWO TIMES A DAY
     Route: 042
  8. CEFTRIAXONE [Suspect]
     Active Substance: CEFTRIAXONE
     Indication: Liver abscess
  9. CEFTRIAXONE [Suspect]
     Active Substance: CEFTRIAXONE
     Indication: Brain abscess
  10. CEFTRIAXONE [Suspect]
     Active Substance: CEFTRIAXONE
     Indication: Fusobacterium infection
  11. RIVAROXABAN [Concomitant]
     Active Substance: RIVAROXABAN
     Indication: Atrial fibrillation
     Dosage: UNK
     Route: 065
  12. LEVETIRACETAM [Concomitant]
     Active Substance: LEVETIRACETAM
     Indication: Seizure prophylaxis
     Dosage: UNK
     Route: 065

REACTIONS (3)
  - Acute kidney injury [Recovering/Resolving]
  - Drug reaction with eosinophilia and systemic symptoms [Recovering/Resolving]
  - Drug-induced liver injury [Recovering/Resolving]
